FAERS Safety Report 24400274 (Version 1)
Quarter: 2024Q4

REPORT INFORMATION
  Report Type: Spontaneous
  Country: US (occurrence: US)
  Receive Date: 20241005
  Receipt Date: 20241005
  Transmission Date: 20250114
  Serious: Yes (Other)
  Sender: GLENMARK
  Company Number: US-MLMSERVICE-20240919-PI198596-00270-1

PATIENT

DRUGS (9)
  1. TRIAMCINOLONE ACETONIDE [Suspect]
     Active Substance: TRIAMCINOLONE ACETONIDE
     Indication: Chorioretinopathy
     Dosage: UNK (SUB-TENON TRIAMCINOLONE IN THE RIGHT EYE EIGHT YEARS PRIOR TO PRESENTATION AND SUB-TENON TRIAMC
  2. PREDNISONE [Suspect]
     Active Substance: PREDNISONE
     Indication: Chorioretinopathy
     Dosage: UNK
     Route: 048
  3. CYCLOPHOSPHAMIDE [Concomitant]
     Active Substance: CYCLOPHOSPHAMIDE
     Indication: Chorioretinopathy
     Dosage: UNK
     Route: 065
  4. ASPIRIN [Concomitant]
     Active Substance: ASPIRIN
     Indication: Ocular discomfort
     Dosage: UNK
     Route: 065
  5. ASPIRIN [Concomitant]
     Active Substance: ASPIRIN
     Indication: Visual impairment
  6. ROFECOXIB [Concomitant]
     Active Substance: ROFECOXIB
     Indication: Ocular discomfort
     Dosage: UNK
     Route: 065
  7. ROFECOXIB [Concomitant]
     Active Substance: ROFECOXIB
     Indication: Visual impairment
  8. MYCOPHENOLATE MOFETIL [Concomitant]
     Active Substance: MYCOPHENOLATE MOFETIL
     Indication: Chorioretinopathy
     Dosage: 1.5 GRAM EVERY 12 HOURS
     Route: 048
  9. METHOTREXATE [Concomitant]
     Active Substance: METHOTREXATE
     Indication: Chorioretinopathy
     Dosage: 25 MILLIGRAM, QW (STARTED EIGHT YEARS PRIOR TO PRESENTATION AND 4 YEARS PRIOR TO PRESENTATION MAXIMI
     Route: 048

REACTIONS (5)
  - Neoplasm progression [Recovering/Resolving]
  - Choroidal osteoma [Recovering/Resolving]
  - Visual acuity reduced [Recovering/Resolving]
  - Retinal degeneration [Recovering/Resolving]
  - Blindness unilateral [Recovering/Resolving]
